FAERS Safety Report 21151179 (Version 1)
Quarter: 2022Q3

REPORT INFORMATION
  Report Type: Report from Study
  Country: ES (occurrence: ES)
  Receive Date: 20220730
  Receipt Date: 20220730
  Transmission Date: 20221027
  Serious: Yes (Hospitalization)
  Sender: FDA-Public Use
  Company Number: None

PATIENT
  Age: 45 Year
  Sex: Male
  Weight: 64.7 kg

DRUGS (3)
  1. PACLITAXEL [Suspect]
     Active Substance: PACLITAXEL
     Indication: Metastatic choriocarcinoma
     Dosage: CONCENTRATE FOR SOLUTION FOR INFUSION EFG, TIP SCHEME, FORM STRENGTH : 6 MG/ML, DURATION: 8 DAYS, 1
     Dates: start: 20211025, end: 20211101
  2. MESNA [Suspect]
     Active Substance: MESNA
     Indication: Metastatic choriocarcinoma
     Dosage: SOLUTION FOR INJECTION AND PERFUSION EFG, TIP SCHEME, FORM STRENGTH ; 100 MG/ML,  DURATION: 8 DAYS,
     Dates: start: 20211025, end: 20211101
  3. CISPLATIN [Suspect]
     Active Substance: CISPLATIN
     Indication: Metastatic choriocarcinoma
     Dosage: CONCENTRATE FOR SOLUTION FOR INFUSION EFG, TIP SCHEME, FORM STRENGTH : 1 MG/ML, DURATION: 8 DAYS, CI
     Dates: start: 20211025, end: 20211101

REACTIONS (2)
  - Pancytopenia [Recovered/Resolved]
  - Febrile neutropenia [Recovered/Resolved]

NARRATIVE: CASE EVENT DATE: 20211103
